FAERS Safety Report 8073976-1 (Version None)
Quarter: 2012Q1

REPORT INFORMATION
  Report Type: 
  Country: None (occurrence: None)
  Receive Date: 20120126
  Receipt Date: 20120116
  Transmission Date: 20120608
  Serious: Yes (Hospitalization, Other)
  Sender: FDA-Public Use
  Company Number: US-ELI_LILLY_AND_COMPANY-US201201006353

PATIENT
  Age: 55 Year
  Sex: Male

DRUGS (5)
  1. ANGIOMAX [Concomitant]
  2. EFFIENT [Suspect]
     Dosage: 10 MG, UNKNOWN
     Dates: start: 20111230
  3. EFFIENT [Suspect]
     Dosage: 60 MG, LOADING DOSE
     Dates: start: 20111230, end: 20111230
  4. INTEGRILIN [Concomitant]
     Route: 042
  5. ASPIRIN [Concomitant]
     Dosage: 324 MG, UNKNOWN

REACTIONS (2)
  - THROMBOSIS IN DEVICE [None]
  - CORONARY ARTERY BYPASS [None]
